FAERS Safety Report 5171420-5 (Version None)
Quarter: 2006Q4

REPORT INFORMATION
  Report Type: 
  Country: None (occurrence: None)
  Receive Date: 20061213
  Receipt Date: 20060413
  Transmission Date: 20070319
  Serious: Yes (Hospitalization)
  Sender: FDA-Public Use
  Company Number: US-AMGEN-STX176176

PATIENT
  Sex: Male

DRUGS (9)
  1. ENBREL [Suspect]
     Indication: RHEUMATOID ARTHRITIS
     Dates: start: 20010105, end: 20060413
  2. METHOTREXATE [Concomitant]
     Dates: end: 20060401
  3. PREDNISONE TAB [Concomitant]
     Dates: start: 20030101
  4. PREDNISONE TAB [Concomitant]
  5. NSAID [Concomitant]
  6. CRESTOR [Concomitant]
  7. TOPROL-XL [Concomitant]
     Route: 048
  8. PIROXICAM [Concomitant]
  9. NICODERM PATCH (ALZA CORP) [Concomitant]
     Route: 062
     Dates: end: 20060401

REACTIONS (1)
  - MYOCARDIAL INFARCTION [None]
